FAERS Safety Report 7690919-0 (Version None)
Quarter: 2011Q3

REPORT INFORMATION
  Report Type: 
  Country: None (occurrence: None)
  Receive Date: 20110812
  Receipt Date: 20110805
  Transmission Date: 20111222
  Serious: Yes (Hospitalization)
  Sender: FDA-Public Use
  Company Number: TRP_07878_2011

PATIENT
  Age: 38 Year
  Sex: Female

DRUGS (2)
  1. PEGINTERFERON ALFA-2B [Suspect]
     Indication: HEPATITIS C
     Dosage: 80 UG 1X/WEEK
  2. RIBAVIRIN [Suspect]
     Dosage: 600 MG, DAILY, 200 MG, DAILY

REACTIONS (8)
  - AUTOIMMUNE THYROIDITIS [None]
  - HEPATIC ATROPHY [None]
  - HEPATIC NECROSIS [None]
  - HEPATIC ENCEPHALOPATHY [None]
  - AUTOIMMUNE HEPATITIS [None]
  - ANAEMIA [None]
  - LIVER TRANSPLANT [None]
  - HEPATIC HAEMORRHAGE [None]
